FAERS Safety Report 4535881-4 (Version None)
Quarter: 2004Q4

REPORT INFORMATION
  Report Type: 
  Country: None (occurrence: None)
  Receive Date: 20041223
  Receipt Date: 20041215
  Transmission Date: 20050328
  Serious: Yes (Hospitalization)
  Sender: FDA-Public Use
  Company Number: PHBS2004JP16855

PATIENT
  Age: 59 Year
  Sex: Male

DRUGS (3)
  1. PREDNISOLONE [Concomitant]
     Dosage: UNK, UNK
     Route: 048
     Dates: start: 20020101
  2. METENOLONE ACETATE [Concomitant]
     Route: 048
     Dates: start: 20020101
  3. CYCLOSPORINE [Suspect]
     Indication: APLASIA PURE RED CELL
     Dosage: 100 MG/D
     Route: 048
     Dates: start: 20020101

REACTIONS (3)
  - PERICARDIAL EXCISION [None]
  - PERICARDITIS CONSTRICTIVE [None]
  - THORACOTOMY [None]
